FAERS Safety Report 4527064-9 (Version None)
Quarter: 2004Q4

REPORT INFORMATION
  Report Type: 
  Country: None (occurrence: None)
  Receive Date: 20041213
  Receipt Date: 20041129
  Transmission Date: 20050328
  Serious: Yes (Hospitalization)
  Sender: FDA-Public Use
  Company Number: 2004101373

PATIENT
  Age: 58 Year
  Sex: Female

DRUGS (1)
  1. NORVASC [Suspect]
     Indication: ILL-DEFINED DISORDER

REACTIONS (3)
  - DIPLOPIA [None]
  - GENERAL PHYSICAL HEALTH DETERIORATION [None]
  - MYASTHENIA GRAVIS [None]
